FAERS Safety Report 14872687 (Version 5)
Quarter: 2018Q2

REPORT INFORMATION
  Report Type: Report from Study
  Country: US (occurrence: US)
  Receive Date: 20180510
  Receipt Date: 20180619
  Transmission Date: 20180711
  Serious: Yes (Hospitalization)
  Sender: FDA-Public Use
  Company Number: US-ROCHE-2116497

PATIENT
  Age: 61 Year
  Sex: Male
  Weight: 95 kg

DRUGS (2)
  1. COBIMETINIB. [Suspect]
     Active Substance: COBIMETINIB
     Indication: SQUAMOUS CELL CARCINOMA
     Dosage: 3 TABLETS OF 20 MG EACH) ORALLY ONCE A DAY ON DAYS 1-21 OF EACH 28-DAY CYCLE, LAST DOSE PRIOR TO SAE
     Route: 048
     Dates: start: 20180410
  2. ATEZOLIZUMAB. [Suspect]
     Active Substance: ATEZOLIZUMAB
     Indication: SQUAMOUS CELL CARCINOMA
     Dosage: ON DAYS 1 AND 15 OF EACH 28-DAY CYCLE, LAST DOSE PRIOR TO SAE: 24/APR/2018
     Route: 042
     Dates: start: 20180410

REACTIONS (3)
  - Vomiting [Recovered/Resolved]
  - Nausea [Recovered/Resolved]
  - Encephalitis autoimmune [Recovered/Resolved]

NARRATIVE: CASE EVENT DATE: 20180427
